FAERS Safety Report 5088071-3 (Version None)
Quarter: 2006Q3

REPORT INFORMATION
  Report Type: 
  Country: None (occurrence: None)
  Receive Date: 20060821
  Receipt Date: 20060808
  Transmission Date: 20061208
  Serious: Yes (Death, Other)
  Sender: FDA-Public Use
  Company Number: 2006084910

PATIENT
  Sex: Male

DRUGS (1)
  1. GEODON [Suspect]
     Dosage: ONE DOSE (INTRAMUSCULAR)
     Route: 030

REACTIONS (6)
  - BRAIN HYPOXIA [None]
  - BRAIN OEDEMA [None]
  - CEREBRAL HAEMATOMA [None]
  - CONVULSION [None]
  - PALPITATIONS [None]
  - RESPIRATORY ARREST [None]
